FAERS Safety Report 6744260-0 (Version None)
Quarter: 2010Q2

REPORT INFORMATION
  Report Type: 
  Country: None (occurrence: None)
  Receive Date: 20100527
  Receipt Date: 20100517
  Transmission Date: 20101027
  Serious: Yes (Other)
  Sender: FDA-Public Use
  Company Number: US-BAYER-201022941NA

PATIENT
  Age: 48 Year
  Sex: Male
  Weight: 84 kg

DRUGS (7)
  1. MAGNEVIST [Suspect]
     Indication: NUCLEAR MAGNETIC RESONANCE IMAGING
     Dosage: 15 ML OF A 0.25 ML/50 ML
     Route: 014
     Dates: start: 20100507, end: 20100507
  2. ATENOLOL [Concomitant]
  3. STRETRIA [Concomitant]
  4. NEPROX [Concomitant]
  5. OXILAN NON-IONIZED [Concomitant]
     Dosage: AS USED: 2 ML
     Dates: start: 20100507, end: 20100507
  6. MARCAINE [Concomitant]
     Dosage: 0.5% INTO LEFT SHOULDER JOINT
     Dates: start: 20100507, end: 20100507
  7. LIDOCAINE [Concomitant]
     Dosage: 1%

REACTIONS (3)
  - EYE SWELLING [None]
  - PHARYNGEAL OEDEMA [None]
  - SWELLING FACE [None]
